FAERS Safety Report 7089758-3 (Version None)
Quarter: 2010Q4

REPORT INFORMATION
  Report Type: 
  Country: None (occurrence: None)
  Receive Date: 20101108
  Receipt Date: 20100622
  Transmission Date: 20110411
  Serious: No
  Sender: FDA-Public Use
  Company Number: US-ABBOTT-10P-163-0653905-00

PATIENT
  Sex: Male

DRUGS (6)
  1. TRICOR [Suspect]
     Indication: BLOOD CHOLESTEROL INCREASED
     Route: 048
     Dates: start: 20100301
  2. ASPIRIN [Suspect]
     Indication: CARDIAC DISORDER
     Dosage: BAYER MFR
  3. ASPIRIN [Suspect]
     Indication: PROPHYLAXIS
  4. OMEPRAZOLE [Concomitant]
     Indication: PROPHYLAXIS AGAINST GASTROINTESTINAL ULCER
     Route: 048
  5. VITAMIN D [Concomitant]
     Indication: VITAMIN SUPPLEMENTATION
     Route: 048
  6. LAMISIL [Concomitant]
     Indication: ONYCHOMYCOSIS

REACTIONS (1)
  - DERMATITIS [None]
